FAERS Safety Report 20066921 (Version 2)
Quarter: 2022Q1

REPORT INFORMATION
  Report Type: Spontaneous
  Country: LU (occurrence: None)
  Receive Date: 20211115
  Receipt Date: 20220107
  Transmission Date: 20220423
  Serious: Yes (Hospitalization, Disabling)
  Sender: FDA-Public Use
  Company Number: None

PATIENT
  Age: 66 Year
  Sex: Female
  Weight: 76 kg

DRUGS (7)
  1. TOCILIZUMAB [Suspect]
     Active Substance: TOCILIZUMAB
     Indication: Psoriatic arthropathy
     Route: 041
     Dates: start: 2016, end: 20210607
  2. COMIRNATY [Suspect]
     Active Substance: TOZINAMERAN
     Indication: COVID-19 immunisation
     Dosage: D2
     Route: 030
     Dates: start: 20210602, end: 20210602
  3. COMIRNATY [Suspect]
     Active Substance: TOZINAMERAN
     Dosage: D1
     Route: 030
     Dates: start: 20210505, end: 20210505
  4. ASPIRIN [Concomitant]
     Active Substance: ASPIRIN
  5. IMURAN [Concomitant]
     Active Substance: AZATHIOPRINE
     Indication: Autoimmune hepatitis
     Route: 048
  6. LASIX [Concomitant]
     Active Substance: FUROSEMIDE
     Route: 048
  7. BUDESONIDE [Concomitant]
     Active Substance: BUDESONIDE
     Indication: Autoimmune hepatitis
     Route: 048

REACTIONS (8)
  - Glomerulonephritis [Not Recovered/Not Resolved]
  - Cryoglobulinaemia [Not Recovered/Not Resolved]
  - Capillary leak syndrome [Recovering/Resolving]
  - Respiratory distress [Recovering/Resolving]
  - Pleural effusion [Recovering/Resolving]
  - Inflammation [Recovering/Resolving]
  - Pericardial effusion [Recovering/Resolving]
  - Polyneuropathy [Not Recovered/Not Resolved]

NARRATIVE: CASE EVENT DATE: 20210701
